FAERS Safety Report 4609705-0 (Version None)
Quarter: 2005Q1

REPORT INFORMATION
  Report Type: 
  Country: None (occurrence: None)
  Receive Date: 20050314
  Receipt Date: 20050228
  Transmission Date: 20050727
  Serious: Yes (Life-Threatening)
  Sender: FDA-Public Use
  Company Number: 2004CG02559

PATIENT
  Age: 36 Year
  Sex: Male
  Weight: 69 kg

DRUGS (5)
  1. SYMBICORT TURBUHALER ^DRACO^ [Suspect]
     Indication: ASTHMA
     Dosage: 160/4.5 UG BID
     Dates: start: 20041210, end: 20041217
  2. SYMBICORT TURBUHALER ^DRACO^ [Suspect]
     Indication: ASTHMA
     Dosage: 160/4.5 UG PRN
     Dates: start: 20041210, end: 20041217
  3. SINGULAIR [Suspect]
     Indication: ASTHMA
     Dosage: 10 MG DAILY IH
     Route: 055
     Dates: end: 20041210
  4. SERETIDE ^ALLEN + HANBURY LTD^ [Suspect]
     Indication: ASTHMA
     Dosage: 10 MG DAILY IH
     Route: 055
     Dates: end: 20041210
  5. VENTOLIN [Concomitant]

REACTIONS (1)
  - ASTHMA [None]
